FAERS Safety Report 9896762 (Version 1)
Quarter: 2014Q1

REPORT INFORMATION
  Report Type: Spontaneous
  Country: US (occurrence: US)
  Receive Date: 20140213
  Receipt Date: 20140213
  Transmission Date: 20141002
  Serious: No
  Sender: FDA-Public Use
  Company Number: US-BRISTOL-MYERS SQUIBB COMPANY-19185800

PATIENT
  Age: 63 Year
  Sex: Female
  Weight: 86.17 kg

DRUGS (1)
  1. ORENCIA [Suspect]
     Indication: RHEUMATOID ARTHRITIS
     Route: 042
     Dates: start: 20130809

REACTIONS (3)
  - Nausea [Not Recovered/Not Resolved]
  - Pain [Unknown]
  - Pyrexia [Unknown]
